FAERS Safety Report 9773294 (Version 2)
Quarter: 2013Q4

REPORT INFORMATION
  Report Type: Spontaneous
  Country: JP (occurrence: JP)
  Receive Date: 20131219
  Receipt Date: 20131219
  Transmission Date: 20140711
  Serious: Yes (Death)
  Sender: FDA-Public Use
  Company Number: JP-NOVOPROD-329360

PATIENT
  Age: 81 Year
  Sex: Male

DRUGS (5)
  1. VICTOZA HIKACHU INJECTION [Suspect]
     Indication: DIABETES MELLITUS
     Dosage: UNK
     Route: 058
     Dates: start: 201009
  2. PREDNISOLONE [Concomitant]
     Indication: NEPHROTIC SYNDROME
     Dosage: 5 MG, QD
     Route: 048
     Dates: start: 200712
  3. PARIET [Concomitant]
     Dosage: 10 MG, UNK
     Route: 048
  4. FERROMIA                           /00023516/ [Concomitant]
     Dosage: 100 MG, UNK
     Route: 048
  5. LASIX                              /00032601/ [Concomitant]
     Dosage: 40 MG, UNK
     Route: 048

REACTIONS (1)
  - Hypoglycaemia [Fatal]
